FAERS Safety Report 5095291-0 (Version None)
Quarter: 2006Q3

REPORT INFORMATION
  Report Type: 
  Country: None (occurrence: None)
  Receive Date: 20060901
  Receipt Date: 20060821
  Transmission Date: 20061208
  Serious: Yes (Other)
  Sender: FDA-Public Use
  Company Number: CA-JNJFOC-20060805150

PATIENT
  Sex: Male

DRUGS (1)
  1. ELMIRON [Suspect]
     Indication: CYSTITIS INTERSTITIAL
     Dates: start: 20030515

REACTIONS (1)
  - CHRONIC LYMPHOCYTIC LEUKAEMIA [None]
